FAERS Safety Report 15849312 (Version 1)
Quarter: 2019Q1

REPORT INFORMATION
  Report Type: Spontaneous
  Country: US (occurrence: US)
  Receive Date: 20190121
  Receipt Date: 20190121
  Transmission Date: 20190417
  Serious: No
  Sender: FDA-Public Use
  Company Number: US-LANNETT COMPANY, INC.-US-2018LAN004620

PATIENT

DRUGS (2)
  1. OMEPRAZOLE. [Concomitant]
     Active Substance: OMEPRAZOLE
     Indication: ANTACID THERAPY
     Dosage: MANUFACTURER SANDOZ
  2. URSODIOL. [Suspect]
     Active Substance: URSODIOL
     Indication: BILIARY CIRRHOSIS
     Dosage: 300 MG, TID
     Route: 048
     Dates: start: 2018

REACTIONS (1)
  - Product commingling [Unknown]
